FAERS Safety Report 8915644 (Version 4)
Quarter: 2013Q1

REPORT INFORMATION
  Report Type: Spontaneous
  Country: US (occurrence: US)
  Receive Date: 20121119
  Receipt Date: 20130206
  Transmission Date: 20140127
  Serious: Yes (Hospitalization, Other)
  Sender: FDA-Public Use
  Company Number: US-009507513-1202USA00841

PATIENT
  Sex: Female

DRUGS (3)
  1. FOSAMAX [Suspect]
     Indication: OSTEOPOROSIS
     Dosage: 70 MG,ONCE A WEEK
     Route: 048
     Dates: start: 2003, end: 201109
  2. FOSAMAX PLUS D [Suspect]
     Indication: OSTEOPOROSIS
     Dosage: 70 MG, ONCE A WEEK
     Route: 048
     Dates: end: 201109
  3. OMEPRAZOLE [Concomitant]
     Dosage: UNK
     Dates: start: 200006

REACTIONS (25)
  - Femur fracture [Unknown]
  - Femur fracture [Unknown]
  - Pain [Unknown]
  - Syncope [Unknown]
  - Fall [Unknown]
  - Muscle haemorrhage [Unknown]
  - Adverse drug reaction [Unknown]
  - Inappropriate antidiuretic hormone secretion [Unknown]
  - Hyponatraemia [Unknown]
  - Atrial fibrillation [Recovered/Resolved]
  - Cardiac failure congestive [Unknown]
  - Lobar pneumonia [Unknown]
  - Hypomagnesaemia [Unknown]
  - Sjogren^s syndrome [Unknown]
  - Hypothyroidism [Unknown]
  - Anaemia [Unknown]
  - Back pain [Unknown]
  - Hypertension [Unknown]
  - Osteoarthritis [Unknown]
  - Osteopenia [Unknown]
  - Intervertebral disc degeneration [Unknown]
  - Osteoarthritis [Not Recovered/Not Resolved]
  - Exostosis [Unknown]
  - Bone density decreased [Unknown]
  - Pain in extremity [Unknown]
